FAERS Safety Report 4680788-5 (Version None)
Quarter: 2005Q2

REPORT INFORMATION
  Report Type: 
  Country: None (occurrence: None)
  Receive Date: 20050601
  Receipt Date: 20050520
  Transmission Date: 20051028
  Serious: Yes (Life-Threatening)
  Sender: FDA-Public Use
  Company Number: 02100-UK-05-0006

PATIENT
  Age: 76 Year
  Sex: Male

DRUGS (4)
  1. CILOSTAZOL [Suspect]
     Indication: PERIPHERAL VASCULAR DISORDER
     Dosage: 200 MG
     Route: 048
     Dates: end: 20050510
  2. LISINOPRIL [Concomitant]
  3. ASPIRIN [Concomitant]
  4. ATORVASTATIN CALCIUM [Concomitant]

REACTIONS (1)
  - HAEMORRHAGE [None]
